FAERS Safety Report 10267932 (Version 1)
Quarter: 2014Q2

REPORT INFORMATION
  Report Type: Spontaneous
  Country: IT (occurrence: IT)
  Receive Date: 20140630
  Receipt Date: 20140630
  Transmission Date: 20141212
  Serious: Yes (Other)
  Sender: FDA-Public Use
  Company Number: IT-SA-2014SA080506

PATIENT
  Age: 49 Year
  Sex: Male

DRUGS (3)
  1. APROVEL [Suspect]
     Indication: HYPERTENSION
     Route: 048
     Dates: start: 20140207, end: 20140607
  2. ALMARYTM [Concomitant]
     Route: 048
  3. SODIUM CHLORIDE/POTASSIUM CHLORIDE/CALCIUM CHLORIDE ANHYDROUS/SODIUM ACETATE/MAGNESIUM CHLORIDE ANHY [Concomitant]
     Route: 042

REACTIONS (3)
  - Loss of consciousness [Recovered/Resolved]
  - Hyperhidrosis [Recovered/Resolved]
  - Malaise [Recovered/Resolved]
